FAERS Safety Report 7181050-1 (Version None)
Quarter: 2010Q4

REPORT INFORMATION
  Report Type: 
  Country: None (occurrence: None)
  Receive Date: 20101221
  Receipt Date: 20100415
  Transmission Date: 20110411
  Serious: No
  Sender: FDA-Public Use
  Company Number: US-AMGEN-QUU406523

PATIENT

DRUGS (1)
  1. ENBREL [Suspect]
     Indication: PSORIASIS
     Dosage: UNK UNK, UNK
     Dates: start: 20091101, end: 20100401

REACTIONS (4)
  - HYPERTENSION [None]
  - OEDEMA PERIPHERAL [None]
  - RETROPERITONEAL LYMPHADENOPATHY [None]
  - SLEEP APNOEA SYNDROME [None]
